FAERS Safety Report 17980736 (Version 1)
Quarter: 2020Q3

REPORT INFORMATION
  Report Type: Report from Study
  Country: IT (occurrence: IT)
  Receive Date: 20200704
  Receipt Date: 20200704
  Transmission Date: 20201103
  Serious: Yes (Hospitalization)
  Sender: FDA-Public Use
  Company Number: IT-ROCHE-2635317

PATIENT
  Age: 76 Year
  Sex: Female

DRUGS (4)
  1. FEVARIN [Concomitant]
     Active Substance: FLUVOXAMINE MALEATE
     Route: 065
  2. MINIAS [Concomitant]
     Active Substance: LORMETAZEPAM
     Route: 065
  3. CLONAZEPAM. [Suspect]
     Active Substance: CLONAZEPAM
     Indication: DRUG ABUSE
     Route: 065
     Dates: start: 20200512, end: 20200512
  4. MIRTAZAPINE. [Concomitant]
     Active Substance: MIRTAZAPINE
     Route: 065

REACTIONS (2)
  - Sopor [Recovering/Resolving]
  - Drug abuse [Unknown]

NARRATIVE: CASE EVENT DATE: 20200512
